FAERS Safety Report 5159513-X (Version None)
Quarter: 2006Q4

REPORT INFORMATION
  Report Type: 
  Country: None (occurrence: None)
  Receive Date: 20061117
  Receipt Date: 20061107
  Transmission Date: 20070319
  Serious: Yes (Hospitalization, Other)
  Sender: FDA-Public Use
  Company Number: 2002070599

PATIENT
  Sex: Male
  Weight: 90.7194 kg

DRUGS (5)
  1. ALPRAZOLAM [Suspect]
     Indication: ANXIETY
     Dosage: 3 MG (1 MG, 3 IN 1 D)
     Dates: start: 19850601
  2. ALPRAZOLAM [Suspect]
     Indication: PANIC ATTACK
     Dosage: 3 MG (1 MG, 3 IN 1 D)
     Dates: start: 19850601
  3. ZOLOFT [Suspect]
     Indication: BIPOLAR I DISORDER
     Dosage: 200 MG (200 MG, 1 IN 1 D), ORAL
     Route: 048
     Dates: start: 19880101
  4. LORTAB [Concomitant]
  5. FLEXERIL [Concomitant]

REACTIONS (9)
  - CERVICAL VERTEBRAL FRACTURE [None]
  - COMA [None]
  - CONVULSION [None]
  - HEAD INJURY [None]
  - LOSS OF CONSCIOUSNESS [None]
  - MEMORY IMPAIRMENT [None]
  - ROAD TRAFFIC ACCIDENT [None]
  - SPINAL FRACTURE [None]
  - WEIGHT DECREASED [None]
